FAERS Safety Report 8050621-2 (Version None)
Quarter: 2012Q1

REPORT INFORMATION
  Report Type: 
  Country: None (occurrence: None)
  Receive Date: 20120117
  Receipt Date: 20120117
  Transmission Date: 20120608
  Serious: Yes (Other)
  Sender: FDA-Public Use
  Company Number: None

PATIENT
  Age: 23 Year
  Sex: Female
  Weight: 58.967 kg

DRUGS (1)
  1. CYMBALTA [Suspect]
     Indication: ANXIETY

REACTIONS (4)
  - FATIGUE [None]
  - MALAISE [None]
  - WITHDRAWAL SYNDROME [None]
  - PARAESTHESIA [None]
